FAERS Safety Report 6278603-1 (Version None)
Quarter: 2009Q3

REPORT INFORMATION
  Report Type: 
  Country: None (occurrence: None)
  Receive Date: 20090722
  Receipt Date: 20090211
  Transmission Date: 20100115
  Serious: No
  Sender: FDA-Public Use
  Company Number: US-BAUSCH-2009BL000599

PATIENT
  Age: 71 Year
  Sex: Female
  Weight: 51 kg

DRUGS (7)
  1. OPCON-A [Suspect]
     Indication: OCULAR HYPERAEMIA
     Route: 047
     Dates: start: 20090101, end: 20090101
  2. OPCON-A [Suspect]
     Indication: EYE PRURITUS
     Route: 047
     Dates: start: 20090101, end: 20090101
  3. SYNTHROID [Concomitant]
     Indication: THYROID DISORDER
     Dates: start: 20020101
  4. PLAQUENIL [Concomitant]
     Indication: RHEUMATOID ARTHRITIS
     Route: 048
     Dates: start: 20060101
  5. ONE A DAY ESSENTIAL /USA/ [Concomitant]
     Indication: VITAMIN SUPPLEMENTATION
     Route: 048
  6. FOLIC ACID [Concomitant]
     Route: 048
  7. ASPIRIN [Concomitant]
     Route: 048

REACTIONS (3)
  - CONDITION AGGRAVATED [None]
  - EYE PAIN [None]
  - OCULAR HYPERAEMIA [None]
